FAERS Safety Report 22075358 (Version 1)
Quarter: 2023Q1

REPORT INFORMATION
  Report Type: Spontaneous
  Country: DE (occurrence: DE)
  Receive Date: 20230308
  Receipt Date: 20230308
  Transmission Date: 20230418
  Serious: Yes (Congenital Anomaly)
  Sender: FDA-Public Use
  Company Number: DE-EMBRYOTOX-202102888

PATIENT
  Age: 1 Day
  Sex: Male

DRUGS (5)
  1. ESCITALOPRAM [Suspect]
     Active Substance: ESCITALOPRAM OXALATE
     Indication: Depression
     Dosage: 10 MILLIGRAM DAILY; 10 [MG/D (UP TO 5 MG/D) ], 0. - 36.1. GESTATIONAL WEEK
     Route: 064
     Dates: start: 20210208, end: 20211019
  2. Comirnaty monovalent (BioNTech/Pfizer) [Concomitant]
     Indication: COVID-19 immunisation
     Dosage: COMIRNATY MONOVALENT (BIONTECH/PFIZER), 27.2. - 27.2. GESTATIONAL WEEK
     Dates: start: 20210818, end: 20210818
  3. Comirnaty monovalent (BioNTech/Pfizer) [Concomitant]
     Dosage: FIRST COVID-19 VACCINATION, 27.2. - 27.2. GESTATIONAL WEEK
     Dates: start: 20210803, end: 20210803
  4. ALBUTEROL [Concomitant]
     Active Substance: ALBUTEROL
     Indication: Asthma
     Dosage: IF NEEDED, TRIMESTER: UNKNOWN TRIMESTER
  5. BOOSTRIX [Concomitant]
     Active Substance: TETANUS TOXOID, REDUCED DIPHTHERIA TOXOID AND ACELLULAR PERTUSSIS VACCINE, ADSORBED ANTIGENS
     Indication: Immunisation
     Dosage: 31. - 32. GESTATIONAL WEEK

REACTIONS (3)
  - Premature baby [Unknown]
  - Craniosynostosis [Unknown]
  - Foetal exposure during pregnancy [Unknown]

NARRATIVE: CASE EVENT DATE: 20210208
